FAERS Safety Report 4318443-3 (Version None)
Quarter: 2004Q1

REPORT INFORMATION
  Report Type: 
  Country: None (occurrence: None)
  Receive Date: 20040315
  Receipt Date: 20040303
  Transmission Date: 20041129
  Serious: Yes (Hospitalization)
  Sender: FDA-Public Use
  Company Number: 04P-044-0252421-00

PATIENT
  Age: 40 Year
  Sex: Female

DRUGS (1)
  1. BIAXIN [Suspect]
     Indication: PHARYNGITIS
     Dosage: PER ORAL
     Route: 048
     Dates: start: 20031212, end: 20031214

REACTIONS (3)
  - FATIGUE [None]
  - MALAISE [None]
  - PHARYNGITIS [None]
